FAERS Safety Report 6015160-9 (Version None)
Quarter: 2008Q4

REPORT INFORMATION
  Report Type: 
  Country: None (occurrence: None)
  Receive Date: 20081219
  Receipt Date: 20081219
  Transmission Date: 20090506
  Serious: Yes (Other)
  Sender: FDA-Public Use
  Company Number: None

PATIENT
  Age: 39 Year
  Sex: Male
  Weight: 122.4712 kg

DRUGS (2)
  1. FENTANYL-25 [Suspect]
     Indication: INTERVERTEBRAL DISC PROTRUSION
     Dosage: 25 MCG/HR 1 EVERY 2-DAYS TRANSDERMAL
     Route: 062
     Dates: start: 20081001, end: 20081206
  2. FENTANYL-25 [Suspect]
     Indication: SCIATICA
     Dosage: 25 MCG/HR 1 EVERY 2-DAYS TRANSDERMAL
     Route: 062
     Dates: start: 20081001, end: 20081206

REACTIONS (2)
  - DEVICE MALFUNCTION [None]
  - PRODUCT QUALITY ISSUE [None]
